FAERS Safety Report 20492359 (Version 2)
Quarter: 2022Q2

REPORT INFORMATION
  Report Type: Spontaneous
  Country: US (occurrence: US)
  Receive Date: 20220218
  Receipt Date: 20220404
  Transmission Date: 20220721
  Serious: Yes (Hospitalization)
  Sender: FDA-Public Use
  Company Number: US-CELLTRION INC.-2022US001629

PATIENT

DRUGS (3)
  1. INFLECTRA [Suspect]
     Active Substance: INFLIXIMAB-DYYB
     Indication: Colitis ulcerative
     Dosage: 325 MG, EVERY 2 WEEKS
     Route: 065
  2. REMICADE [Concomitant]
     Active Substance: INFLIXIMAB
     Dosage: EVERY 8 WEEKS
  3. MESALAMINE [Concomitant]
     Active Substance: MESALAMINE

REACTIONS (4)
  - Condition aggravated [Unknown]
  - Therapeutic response changed [Unknown]
  - Underdose [Unknown]
  - Off label use [Unknown]
